FAERS Safety Report 12388698 (Version 1)
Quarter: 2016Q2

REPORT INFORMATION
  Report Type: Spontaneous
  Country: US (occurrence: None)
  Receive Date: 20160519
  Receipt Date: 20160519
  Transmission Date: 20160815
  Serious: Yes (Other)
  Sender: FDA-Public Use
  Company Number: None

PATIENT
  Age: 81 Year
  Sex: Male
  Weight: 108 kg

DRUGS (2)
  1. FACTOR VIIA (ACTIVATED), RECOMBINANT HUMAN [Concomitant]
  2. NOVO SEVEN [Suspect]
     Active Substance: COAGULATION FACTOR VIIA (RECOMBINANT)

REACTIONS (2)
  - Deep vein thrombosis [None]
  - Supraventricular tachycardia [None]

NARRATIVE: CASE EVENT DATE: 20160508
